FAERS Safety Report 9454695 (Version 2)
Quarter: 2013Q3

REPORT INFORMATION
  Report Type: Spontaneous
  Country: JP (occurrence: JP)
  Receive Date: 20130812
  Receipt Date: 20130816
  Transmission Date: 20140515
  Serious: Yes (Other)
  Sender: FDA-Public Use
  Company Number: PHHY2013JP084264

PATIENT
  Age: 77 Year
  Sex: Male

DRUGS (3)
  1. RIFAMPICIN SANDOZ [Suspect]
     Indication: ATYPICAL MYCOBACTERIAL INFECTION
     Dosage: 450 MG, PER DAY
     Route: 048
     Dates: start: 20130727
  2. ESANBUTOL [Suspect]
     Indication: ATYPICAL MYCOBACTERIAL INFECTION
     Dosage: 500 MG, PER DAY
     Route: 048
     Dates: start: 20130727
  3. CLARITHROMYCIN SANDOZ [Suspect]
     Indication: ATYPICAL MYCOBACTERIAL INFECTION
     Dosage: 800 MG, PER DAY
     Route: 048
     Dates: start: 20130727

REACTIONS (2)
  - Blood sodium decreased [Not Recovered/Not Resolved]
  - Fatigue [Unknown]
